FAERS Safety Report 6117579-4 (Version None)
Quarter: 2009Q1

REPORT INFORMATION
  Report Type: 
  Country: None (occurrence: None)
  Receive Date: 20090314
  Receipt Date: 20090120
  Transmission Date: 20090719
  Serious: No
  Sender: FDA-Public Use
  Company Number: US-ABBOTT-09P-163-0498899-00

PATIENT
  Sex: Male
  Weight: 87.622 kg

DRUGS (1)
  1. HUMIRA [Suspect]
     Indication: RHEUMATOID ARTHRITIS
     Dates: start: 20050101

REACTIONS (5)
  - RASH [None]
  - RASH PAPULAR [None]
  - RASH PRURITIC [None]
  - RASH PUSTULAR [None]
  - STAPHYLOCOCCAL INFECTION [None]
